FAERS Safety Report 4355281-X (Version None)
Quarter: 2004Q2

REPORT INFORMATION
  Report Type: 
  Country: None (occurrence: None)
  Receive Date: 20040505
  Receipt Date: 20040421
  Transmission Date: 20050107
  Serious: Yes (Life-Threatening, Hospitalization, Disabling)
  Sender: FDA-Public Use
  Company Number: 2003AP03755

PATIENT
  Age: 53 Year
  Sex: Male

DRUGS (13)
  1. IRESSA [Suspect]
     Indication: LUNG ADENOCARCINOMA
     Dosage: 250 MG DAILY PO
     Route: 048
     Dates: start: 20030901, end: 20030910
  2. IRESSA [Suspect]
     Indication: NON-SMALL CELL LUNG CANCER
     Dosage: 250 MG DAILY PO
     Route: 048
     Dates: start: 20030901, end: 20030910
  3. CARBOPLATIN [Concomitant]
  4. PACLITAXEL [Concomitant]
  5. GEMCITABINE [Concomitant]
  6. VINORELBINE TARTRATE [Concomitant]
  7. DEPROMEL [Concomitant]
  8. HIRNAMIN [Concomitant]
  9. PENTCILLIN [Concomitant]
  10. PREDONINE [Concomitant]
  11. GASTER [Concomitant]
  12. OMEGACIN [Concomitant]
  13. MINOPHAGEN C [Concomitant]

REACTIONS (12)
  - ALANINE AMINOTRANSFERASE INCREASED [None]
  - ASPARTATE AMINOTRANSFERASE INCREASED [None]
  - BILE DUCT CANCER [None]
  - BILE DUCT STENOSIS [None]
  - BLOOD BILIRUBIN INCREASED [None]
  - DEPRESSION [None]
  - GAMMA-GLUTAMYLTRANSFERASE INCREASED [None]
  - HEPATIC FUNCTION ABNORMAL [None]
  - INSOMNIA [None]
  - INTERSTITIAL LUNG DISEASE [None]
  - JAUNDICE [None]
  - PYREXIA [None]
